FAERS Safety Report 13343583 (Version 1)
Quarter: 2017Q1

REPORT INFORMATION
  Report Type: Spontaneous
  Country: US (occurrence: US)
  Receive Date: 20170316
  Receipt Date: 20170316
  Transmission Date: 20170428
  Serious: Yes (Other)
  Sender: FDA-Public Use
  Company Number: US-BAYER-2017-046031

PATIENT

DRUGS (3)
  1. BAYER ASPIRIN [Suspect]
     Active Substance: ASPIRIN
     Dosage: UNK
     Route: 065
  2. AMBIEN [Concomitant]
     Active Substance: ZOLPIDEM TARTRATE
  3. LYRICA [Concomitant]
     Active Substance: PREGABALIN

REACTIONS (3)
  - Haemorrhagic diathesis [Unknown]
  - Haemorrhage [Unknown]
  - Product use issue [Unknown]
